FAERS Safety Report 22371672 (Version 1)
Quarter: 2023Q2

REPORT INFORMATION
  Report Type: Spontaneous
  Country: CN (occurrence: CN)
  Receive Date: 20230526
  Receipt Date: 20230526
  Transmission Date: 20230722
  Serious: Yes (Other)
  Sender: FDA-Public Use
  Company Number: CN-SA-SAC20230523001682

PATIENT
  Age: 65 Year
  Sex: Male
  Weight: 62 kg

DRUGS (1)
  1. HYDROCHLOROTHIAZIDE\IRBESARTAN [Suspect]
     Active Substance: HYDROCHLOROTHIAZIDE\IRBESARTAN
     Indication: Hypertension
     Dosage: 150 MG, QD
     Route: 048
     Dates: start: 20230509, end: 20230517

REACTIONS (3)
  - Faecaloma [Recovering/Resolving]
  - Abdominal distension [Recovering/Resolving]
  - Constipation [Recovering/Resolving]

NARRATIVE: CASE EVENT DATE: 20230517
